FAERS Safety Report 5420445-0 (Version None)
Quarter: 2007Q3

REPORT INFORMATION
  Report Type: 
  Country: None (occurrence: None)
  Receive Date: 20070816
  Receipt Date: 20070806
  Transmission Date: 20080115
  Serious: Yes (Hospitalization, Other)
  Sender: FDA-Public Use
  Company Number: US020934

PATIENT
  Sex: Female
  Weight: 126.5536 kg

DRUGS (2)
  1. PROVIGIL [Suspect]
     Indication: NARCOLEPSY
     Dosage: 200 MG TO 400 MG QD ORAL
     Route: 048
  2. VITAMINS NOS [Concomitant]

REACTIONS (8)
  - ABNORMAL LABOUR AFFECTING FOETUS [None]
  - CAESAREAN SECTION [None]
  - DRUG EXPOSURE DURING PREGNANCY [None]
  - INDUCED LABOUR [None]
  - OEDEMA [None]
  - POSTOPERATIVE WOUND INFECTION [None]
  - PREGNANCY [None]
  - RESPIRATORY DISTRESS [None]
